FAERS Safety Report 21644689 (Version 8)
Quarter: 2023Q2

REPORT INFORMATION
  Report Type: Report from Study
  Country: US (occurrence: US)
  Receive Date: 20221125
  Receipt Date: 20230518
  Transmission Date: 20230722
  Serious: Yes (Other)
  Sender: FDA-Public Use
  Company Number: US-JAZZ-2022-US-030079

PATIENT
  Sex: Female
  Weight: 92.971 kg

DRUGS (12)
  1. XYREM [Suspect]
     Active Substance: SODIUM OXYBATE
     Indication: Narcolepsy
     Dosage: 4.5 GRAM, BID
     Route: 048
     Dates: start: 2002
  2. XYREM [Suspect]
     Active Substance: SODIUM OXYBATE
     Indication: Cataplexy
     Dosage: 3 MILLIGRAM, TID
  3. XYREM [Suspect]
     Active Substance: SODIUM OXYBATE
     Indication: Somnolence
     Dosage: 4.5 GRAM, BID
  4. PROVIGIL [Concomitant]
     Active Substance: MODAFINIL
     Indication: Product used for unknown indication
     Dosage: UNK
     Route: 048
     Dates: start: 20151230
  5. PROZAC [Concomitant]
     Active Substance: FLUOXETINE HYDROCHLORIDE
     Indication: Product used for unknown indication
     Dosage: 40 MILLIGRAM, QD
     Route: 048
     Dates: start: 2002
  6. PROZAC [Concomitant]
     Active Substance: FLUOXETINE HYDROCHLORIDE
     Dosage: 40 MILLIGRAM, QD
     Route: 048
     Dates: start: 20151230
  7. RITALIN LA [Concomitant]
     Active Substance: METHYLPHENIDATE HYDROCHLORIDE
     Indication: Product used for unknown indication
     Dosage: UNK
     Dates: start: 20151230
  8. ASPIRIN [Concomitant]
     Active Substance: ASPIRIN
     Indication: Product used for unknown indication
     Dosage: UNK
     Dates: start: 20220719
  9. VITAMIN D3 [Concomitant]
     Active Substance: CHOLECALCIFEROL
     Indication: Product used for unknown indication
  10. FLUOXETINE [Concomitant]
     Active Substance: FLUOXETINE HYDROCHLORIDE
     Indication: Product used for unknown indication
     Dosage: 40 MILLIGRAM, QD
     Route: 048
  11. METFORMIN [Concomitant]
     Active Substance: METFORMIN HYDROCHLORIDE
     Indication: Product used for unknown indication
     Dosage: UNK
  12. ASPIRIN [Concomitant]
     Active Substance: ASPIRIN
     Indication: Pre-eclampsia
     Dosage: 81 MILLIGRAM, QD
     Route: 048
     Dates: start: 202205

REACTIONS (7)
  - Gestational diabetes [Unknown]
  - Generalised anxiety disorder [Unknown]
  - Polycystic ovaries [Unknown]
  - Cognitive disorder [Unknown]
  - Exposure during pregnancy [Unknown]
  - Drug ineffective [Unknown]
  - Off label use [Unknown]
